FAERS Safety Report 24058224 (Version 7)
Quarter: 2025Q1

REPORT INFORMATION
  Report Type: Report from Study
  Country: US (occurrence: US)
  Receive Date: 20240708
  Receipt Date: 20250115
  Transmission Date: 20250408
  Serious: Yes (Hospitalization)
  Sender: DECIPHERA PHARMACEUTICALS
  Company Number: US-DECIPHERA PHARMACEUTICALS LLC-2024US000587

PATIENT
  Age: 90 Year
  Sex: Female
  Weight: 53.2 kg

DRUGS (3)
  1. QINLOCK [Suspect]
     Active Substance: RIPRETINIB
     Indication: Gastrointestinal stromal tumour
     Dosage: 150 MILLIGRAM, QD
     Route: 048
     Dates: start: 20240416, end: 2024
  2. QINLOCK [Suspect]
     Active Substance: RIPRETINIB
     Dosage: 150 MILLIGRAM, QD
     Route: 048
     Dates: start: 2024, end: 2024
  3. QINLOCK [Suspect]
     Active Substance: RIPRETINIB
     Dosage: 50 MILLIGRAM, QD
     Route: 048

REACTIONS (9)
  - Back pain [Unknown]
  - Mouth swelling [Recovering/Resolving]
  - Oral mucosal blistering [Recovering/Resolving]
  - Decreased appetite [Unknown]
  - Alopecia [Unknown]
  - Stomatitis [Unknown]
  - Drug ineffective [Unknown]
  - Product dose omission in error [Unknown]
  - Underdose [Unknown]

NARRATIVE: CASE EVENT DATE: 20240101
